FAERS Safety Report 18343633 (Version 2)
Quarter: 2020Q4

REPORT INFORMATION
  Report Type: Report from Study
  Country: GT (occurrence: GT)
  Receive Date: 20201005
  Receipt Date: 20201020
  Transmission Date: 20210113
  Serious: Yes (Other)
  Sender: FDA-Public Use
  Company Number: NVSC2020GT266962

PATIENT
  Age: 68 Year
  Sex: Female

DRUGS (2)
  1. VYMADA [Suspect]
     Active Substance: SACUBITRIL\VALSARTAN
     Indication: CARDIAC FAILURE
     Dosage: UNK UNK, BID (HALF IN THE MORNING AND ONE FULL AT NIGHT)
     Route: 065
  2. VYMADA [Suspect]
     Active Substance: SACUBITRIL\VALSARTAN
     Dosage: 1 DF, QD (STARTED 5 YEARS AGO)
     Route: 065

REACTIONS (8)
  - Cardiomegaly [Unknown]
  - Abdominal pain [Unknown]
  - Incorrect dose administered [Unknown]
  - Underdose [Unknown]
  - Inappropriate schedule of product administration [Unknown]
  - Skin ulcer [Recovering/Resolving]
  - Headache [Recovering/Resolving]
  - Tension [Recovering/Resolving]
